FAERS Safety Report 8464612-0 (Version None)
Quarter: 2012Q2

REPORT INFORMATION
  Report Type: 
  Country: None (occurrence: None)
  Receive Date: 20120620
  Receipt Date: 20120620
  Transmission Date: 20120825
  Serious: Yes (Life-Threatening, Hospitalization)
  Sender: FDA-Public Use
  Company Number: None

PATIENT
  Age: 52 Year
  Sex: Male
  Weight: 81.8 kg

DRUGS (2)
  1. CYMBALTA [Suspect]
     Indication: ARTHRALGIA
     Dosage: 30MG ONCE DAILY ORAL ; 60MG ONCE DAILY ORAL
     Route: 048
     Dates: start: 20120301, end: 20120601
  2. CYMBALTA [Suspect]
     Indication: FIBROMYALGIA
     Dosage: 30MG ONCE DAILY ORAL ; 60MG ONCE DAILY ORAL
     Route: 048
     Dates: start: 20120301, end: 20120601

REACTIONS (8)
  - MENTAL DISORDER [None]
  - SUICIDE ATTEMPT [None]
  - FEELING ABNORMAL [None]
  - INTENTIONAL OVERDOSE [None]
  - IRRITABILITY [None]
  - FATIGUE [None]
  - DISTURBANCE IN ATTENTION [None]
  - DEPRESSED MOOD [None]
